FAERS Safety Report 13538687 (Version 1)
Quarter: 2017Q2

REPORT INFORMATION
  Report Type: Spontaneous
  Country: US (occurrence: US)
  Receive Date: 20170511
  Receipt Date: 20170511
  Transmission Date: 20170830
  Serious: Yes (Hospitalization)
  Sender: FDA-Public Use
  Company Number: None

PATIENT
  Age: 67 Year
  Sex: Female
  Weight: 114 kg

DRUGS (1)
  1. CANAGAFLOZIN [Suspect]
     Active Substance: CANAGLIFLOZIN
     Indication: TYPE 2 DIABETES MELLITUS
     Route: 048

REACTIONS (4)
  - Osteoarthritis [None]
  - Acute kidney injury [None]
  - Hyperkalaemia [None]
  - Post procedural complication [None]

NARRATIVE: CASE EVENT DATE: 20150415
